FAERS Safety Report 9626804 (Version 1)
Quarter: 2013Q4

REPORT INFORMATION
  Report Type: Spontaneous
  Country: HR (occurrence: HR)
  Receive Date: 20131016
  Receipt Date: 20131016
  Transmission Date: 20140711
  Serious: Yes (Death)
  Sender: FDA-Public Use
  Company Number: HR-TEVA-436545ISR

PATIENT
  Sex: Male
  Weight: 85 kg

DRUGS (1)
  1. FLUDARABINE PLIVA [Suspect]
     Indication: CHRONIC LYMPHOCYTIC LEUKAEMIA
     Dosage: SUBSEQUENT TO BODY MASS, CONCENTRATE FOR SOLUTION FOR INFUSION OR INJECTION
     Route: 042
     Dates: start: 20130404, end: 20130404

REACTIONS (3)
  - Liver injury [Fatal]
  - Gastrointestinal toxicity [Fatal]
  - Nephropathy toxic [Fatal]
